FAERS Safety Report 26108515 (Version 2)
Quarter: 2025Q4

REPORT INFORMATION
  Report Type: Spontaneous
  Country: US (occurrence: US)
  Receive Date: 20251201
  Receipt Date: 20251211
  Transmission Date: 20260117
  Serious: Yes (Death, Hospitalization)
  Sender: BIOMARIN
  Company Number: US-BIOMARINAP-US-2025-170247

PATIENT
  Age: 36 Year
  Sex: Male

DRUGS (1)
  1. NAGLAZYME [Suspect]
     Active Substance: GALSULFASE
     Indication: Mucopolysaccharidosis VI
     Dosage: 29 MILLIGRAM, QW
     Dates: start: 201804

REACTIONS (7)
  - Death [Fatal]
  - Dyspnoea [Unknown]
  - Kidney infection [Unknown]
  - Urinary retention [Unknown]
  - Pain [Unknown]
  - Blood sodium decreased [Unknown]
  - Inflammation [Unknown]

NARRATIVE: CASE EVENT DATE: 20251001
